FAERS Safety Report 9070952 (Version 2)
Quarter: 2013Q1

REPORT INFORMATION
  Report Type: Report from Study
  Country: TW (occurrence: TW)
  Receive Date: 20130129
  Receipt Date: 20130307
  Transmission Date: 20140127
  Serious: Yes (Other)
  Sender: FDA-Public Use
  Company Number: TW-GLAXOSMITHKLINE-B0858721A

PATIENT
  Age: 58 None
  Sex: Female
  Weight: 66.5 kg

DRUGS (3)
  1. LAPATINIB [Suspect]
     Indication: BREAST CANCER METASTATIC
     Dosage: 1250MG PER DAY
     Route: 048
     Dates: start: 20070813
  2. CAPECITABINE [Suspect]
     Indication: BREAST CANCER METASTATIC
     Dosage: 3500MG PER DAY
     Route: 048
     Dates: start: 20070813
  3. UREA [Concomitant]
     Indication: PALMAR-PLANTAR ERYTHRODYSAESTHESIA SYNDROME
     Dosage: 100MG PER DAY
     Dates: start: 20100226

REACTIONS (1)
  - B-cell lymphoma [Not Recovered/Not Resolved]
